FAERS Safety Report 8506138-1 (Version None)
Quarter: 2012Q3

REPORT INFORMATION
  Report Type: 
  Country: None (occurrence: None)
  Receive Date: 20120712
  Receipt Date: 20120704
  Transmission Date: 20120928
  Serious: Yes (Disabling, Other)
  Sender: FDA-Public Use
  Company Number: ES-ABBOTT-12P-144-0953831-00

PATIENT
  Age: 68 Year
  Sex: Male
  Weight: 83.6 kg

DRUGS (1)
  1. HUMIRA [Suspect]
     Indication: PSORIASIS
     Route: 058
     Dates: start: 20101126, end: 20120308

REACTIONS (2)
  - ARTHRALGIA [None]
  - PSORIATIC ARTHROPATHY [None]
